FAERS Safety Report 8335895-2 (Version None)
Quarter: 2012Q2

REPORT INFORMATION
  Report Type: 
  Country: None (occurrence: None)
  Receive Date: 20120504
  Receipt Date: 20120430
  Transmission Date: 20120825
  Serious: No
  Sender: FDA-Public Use
  Company Number: US-PFIZER INC-2012106546

PATIENT
  Sex: Male
  Weight: 79 kg

DRUGS (3)
  1. VICODIN [Concomitant]
     Indication: PAIN
     Dosage: UNK, AS NEEDED (MAY BE 2-3 TIMES A WEEK)
  2. NEURONTIN [Suspect]
     Indication: PROCEDURAL PAIN
     Dosage: UNK
     Dates: start: 20100101, end: 20100301
  3. ACIPHEX [Concomitant]
     Indication: GASTROOESOPHAGEAL REFLUX DISEASE
     Dosage: UNK

REACTIONS (2)
  - IMPAIRED WORK ABILITY [None]
  - NIGHTMARE [None]
